APPROVED DRUG PRODUCT: ZYDELIG
Active Ingredient: IDELALISIB
Strength: 100MG
Dosage Form/Route: TABLET;ORAL
Application: N205858 | Product #001
Applicant: GILEAD SCIENCES INC
Approved: Jul 23, 2014 | RLD: Yes | RS: No | Type: RX

PATENTS:
Patent 8865730 | Expires: Mar 5, 2033
Patent 9492449 | Expires: Mar 11, 2030
Patent 9469643 | Expires: Sep 2, 2033
Patent 10730879 | Expires: Mar 5, 2033